FAERS Safety Report 25243434 (Version 2)
Quarter: 2025Q2

REPORT INFORMATION
  Report Type: Spontaneous
  Country: IT (occurrence: IT)
  Receive Date: 20250428
  Receipt Date: 20250509
  Transmission Date: 20250717
  Serious: Yes (Life-Threatening, Hospitalization, Other)
  Sender: MSN LABORATORIES PRIVATE LIMITED
  Company Number: IT-MSNLABS-2025MSNLIT01014

PATIENT

DRUGS (9)
  1. LACOSAMIDE [Suspect]
     Active Substance: LACOSAMIDE
     Indication: Partial seizures with secondary generalisation
     Dosage: 200 MG IV ONCE DAILY
     Route: 042
     Dates: start: 20240726
  2. LACOSAMIDE [Suspect]
     Active Substance: LACOSAMIDE
     Dosage: 200 MG ORALLY TWICE DAILY
     Route: 048
     Dates: start: 20240726
  3. LACOSAMIDE [Suspect]
     Active Substance: LACOSAMIDE
     Dosage: REDUCED TO 100 MG ORALLY TWICE DAILY
     Route: 048
     Dates: start: 20240727
  4. LACOSAMIDE [Suspect]
     Active Substance: LACOSAMIDE
     Dosage: FURTHER REDUCED TO 50 MG DAILY
     Route: 048
     Dates: start: 20240728, end: 20240729
  5. ARIPIPRAZOLE [Suspect]
     Active Substance: ARIPIPRAZOLE
     Indication: Psychotic disorder
     Dosage: 10 MG/DAY
     Route: 065
  6. ARIPIPRAZOLE [Suspect]
     Active Substance: ARIPIPRAZOLE
     Indication: Depression
  7. FLUVOXAMINE [Suspect]
     Active Substance: FLUVOXAMINE
     Indication: Psychotic disorder
     Dosage: 100 MG/DAY
     Route: 065
  8. FLUVOXAMINE [Suspect]
     Active Substance: FLUVOXAMINE
     Indication: Depression
  9. DIAZEPAM [Concomitant]
     Active Substance: DIAZEPAM
     Route: 065

REACTIONS (3)
  - Blood creatine phosphokinase increased [Recovered/Resolved]
  - Rhabdomyolysis [Recovered/Resolved]
  - Drug interaction [Recovered/Resolved]
